FAERS Safety Report 20485983 (Version 2)
Quarter: 2022Q1

REPORT INFORMATION
  Report Type: Spontaneous
  Country: GB (occurrence: GB)
  Receive Date: 20220217
  Receipt Date: 20220224
  Transmission Date: 20220423
  Serious: Yes (Other)
  Sender: FDA-Public Use
  Company Number: GB-MHRA-MED-202202141308530530-4FRS7

PATIENT
  Sex: Female

DRUGS (1)
  1. LAMISIL [Suspect]
     Active Substance: TERBINAFINE HYDROCHLORIDE
     Indication: Adverse drug reaction
     Dosage: UNK, ONCE
     Route: 065

REACTIONS (1)
  - Rash vesicular [Recovered/Resolved with Sequelae]

NARRATIVE: CASE EVENT DATE: 20211101
